FAERS Safety Report 8297060-7 (Version None)
Quarter: 2012Q2

REPORT INFORMATION
  Report Type: 
  Country: None (occurrence: None)
  Receive Date: 20120417
  Receipt Date: 20120417
  Transmission Date: 20120825
  Serious: Yes (Hospitalization)
  Sender: FDA-Public Use
  Company Number: None

PATIENT
  Age: 77 Year
  Sex: Male
  Weight: 92.7 kg

DRUGS (1)
  1. TIGECYCLINE [Suspect]
     Indication: INFECTION
     Dosage: 50 MG BID IV
     Route: 042
     Dates: start: 20120303, end: 20120310

REACTIONS (1)
  - PANCREATITIS [None]
